FAERS Safety Report 19932741 (Version 1)
Quarter: 2021Q4

REPORT INFORMATION
  Report Type: Spontaneous
  Country: US (occurrence: US)
  Receive Date: 20211007
  Receipt Date: 20211007
  Transmission Date: 20220303
  Serious: Yes (Other)
  Sender: FDA-Public Use
  Company Number: None

PATIENT
  Age: 64 Year
  Sex: Female
  Weight: 52.56 kg

DRUGS (7)
  1. PIQRAY [Suspect]
     Active Substance: ALPELISIB
     Indication: Breast cancer
     Route: 048
     Dates: start: 20211007
  2. FASLODEX [Concomitant]
     Active Substance: FULVESTRANT
  3. XARELTO [Concomitant]
     Active Substance: RIVAROXABAN
  4. LEVOTHYROXINE [Concomitant]
     Active Substance: LEVOTHYROXINE
  5. VENLAFAXINE [Concomitant]
     Active Substance: VENLAFAXINE HYDROCHLORIDE
  6. AMOXICILLIN [Concomitant]
     Active Substance: AMOXICILLIN
  7. CHLORHEXIDINE [Concomitant]
     Active Substance: CHLORHEXIDINE

REACTIONS (3)
  - Headache [None]
  - Back pain [None]
  - Muscle spasms [None]

NARRATIVE: CASE EVENT DATE: 20211007
